FAERS Safety Report 9359324 (Version 1)
Quarter: 2013Q2

REPORT INFORMATION
  Report Type: Spontaneous
  Country: FR (occurrence: FR)
  Receive Date: 20130620
  Receipt Date: 20130620
  Transmission Date: 20140414
  Serious: Yes (Hospitalization)
  Sender: FDA-Public Use
  Company Number: PHHY2013FR062134

PATIENT
  Sex: Female

DRUGS (7)
  1. FUROSEMIDE [Suspect]
     Dosage: 20 MG IN ONE DAY
     Route: 048
  2. ISOBAR [Suspect]
     Dosage: 0.5 DF, QD
     Route: 048
     Dates: start: 2001, end: 20110701
  3. COZAAR [Suspect]
     Dosage: 50 MG PER DAY
     Route: 048
     Dates: start: 2001, end: 20110701
  4. OGAST [Suspect]
     Dosage: 15 MG IN ONE DAY
     Route: 048
     Dates: end: 20110701
  5. STAGID [Suspect]
     Dosage: 1 DF, TID
     Route: 048
     Dates: end: 20110701
  6. DEROXAT [Suspect]
     Dosage: 2 DF IN ONE DAY
     Route: 048
     Dates: end: 20110701
  7. TANAKAN [Suspect]
     Dosage: 2 DF IN ONE DAY
     Route: 048
     Dates: end: 20110701

REACTIONS (1)
  - Renal failure acute [Not Recovered/Not Resolved]
